FAERS Safety Report 8283753-4 (Version None)
Quarter: 2012Q2

REPORT INFORMATION
  Report Type: 
  Country: None (occurrence: None)
  Receive Date: 20120413
  Receipt Date: 20110818
  Transmission Date: 20120825
  Serious: No
  Sender: FDA-Public Use
  Company Number: US-ASTRAZENECA-2011SE49883

PATIENT
  Age: 61 Year
  Sex: Female

DRUGS (2)
  1. NEXIUM [Suspect]
     Dosage: SOMETIMES TAKES 2
     Route: 048
  2. NEXIUM [Suspect]
     Dosage: 1 TABLET
     Route: 048

REACTIONS (2)
  - INCORRECT DOSE ADMINISTERED [None]
  - OESOPHAGEAL PAIN [None]
